FAERS Safety Report 7364610-4 (Version None)
Quarter: 2011Q1

REPORT INFORMATION
  Report Type: 
  Country: None (occurrence: None)
  Receive Date: 20110321
  Receipt Date: 20110310
  Transmission Date: 20110831
  Serious: Yes (Hospitalization)
  Sender: FDA-Public Use
  Company Number: ZA-JNJFOC-20110200304

PATIENT
  Age: 50 Year
  Sex: Male
  Weight: 65.1 kg

DRUGS (14)
  1. AMITRIPTYLINE [Concomitant]
     Indication: ARTHRALGIA
     Route: 048
  2. STAMINOGRO [Concomitant]
     Indication: FATIGUE
     Route: 048
  3. METHOTREXATE [Concomitant]
     Indication: RHEUMATOID ARTHRITIS
     Route: 048
  4. CHLOROQUINE [Concomitant]
     Indication: RHEUMATOID ARTHRITIS
     Route: 048
  5. PREDNISONE [Concomitant]
     Indication: RHEUMATOID ARTHRITIS
     Route: 048
  6. TRAMADOL HCL [Concomitant]
     Indication: ARTHRALGIA
     Route: 048
  7. TELMISARTAN [Concomitant]
     Indication: HYPERTENSION
     Route: 048
  8. GOLIMUMAB [Suspect]
     Indication: RHEUMATOID ARTHRITIS
     Dosage: 6TH DOSE IN SERIES
     Route: 058
  9. FOLIC ACID [Concomitant]
     Indication: RHEUMATOID ARTHRITIS
     Route: 048
  10. DICLOFENAC [Concomitant]
     Indication: ARTHRALGIA
     Route: 048
  11. OMEPRAZOLE [Concomitant]
     Indication: DYSPEPSIA
     Route: 048
  12. ACETAMINOPHEN [Concomitant]
     Indication: ARTHRALGIA
     Route: 048
  13. CARVEDILOL [Concomitant]
     Indication: HYPERTENSION
     Route: 048
  14. VITATHION [Concomitant]
     Indication: FATIGUE
     Route: 048

REACTIONS (1)
  - LUNG NEOPLASM MALIGNANT [None]
